FAERS Safety Report 8926965 (Version 2)
Quarter: 2012Q4

REPORT INFORMATION
  Report Type: 
  Country: US (occurrence: US)
  Receive Date: 20121127
  Receipt Date: 20121219
  Transmission Date: 20130627
  Serious: No
  Sender: FDA-Public Use
  Company Number: US-BAYER-2012-123326

PATIENT
  Age: 74 Year
  Sex: Female
  Weight: 91.16 kg

DRUGS (2)
  1. ALEVE LIQUID GELS [Suspect]
     Dosage: 1 DF, QD
     Route: 048
     Dates: start: 201209, end: 201209
  2. AMLODIPINE [Concomitant]

REACTIONS (2)
  - Dizziness [Recovered/Resolved]
  - Adverse reaction [None]
